FAERS Safety Report 25364711 (Version 2)
Quarter: 2025Q3

REPORT INFORMATION
  Report Type: Spontaneous
  Country: CA (occurrence: CA)
  Receive Date: 20250527
  Receipt Date: 20250718
  Transmission Date: 20251020
  Serious: Yes (Other)
  Sender: ROCHE
  Company Number: CA-ROCHE-10000019773

PATIENT
  Age: 37 Year
  Sex: Female
  Weight: 59.3 kg

DRUGS (3)
  1. OCREVUS [Suspect]
     Active Substance: OCRELIZUMAB
     Indication: Product used for unknown indication
     Route: 042
     Dates: start: 20231228
  2. OCREVUS [Suspect]
     Active Substance: OCRELIZUMAB
     Route: 042
  3. RANITIDINE [Concomitant]
     Active Substance: RANITIDINE

REACTIONS (5)
  - Restless legs syndrome [Unknown]
  - Abdominal pain [Recovering/Resolving]
  - Haematemesis [Recovering/Resolving]
  - Folliculitis [Unknown]
  - Gastric ulcer [Unknown]

NARRATIVE: CASE EVENT DATE: 20240112
